FAERS Safety Report 10696473 (Version 8)
Quarter: 2015Q4

REPORT INFORMATION
  Report Type: Spontaneous
  Country: US (occurrence: US)
  Receive Date: 20150107
  Receipt Date: 20151002
  Transmission Date: 20160304
  Serious: No
  Sender: FDA-Public Use
  Company Number: US-GLAXOSMITHKLINE-US2014GSK045786

PATIENT
  Sex: Male

DRUGS (2)
  1. VOTRIENT [Suspect]
     Active Substance: PAZOPANIB HYDROCHLORIDE
     Indication: RENAL CANCER
     Dosage: 800 MG, QD
     Route: 048
     Dates: start: 20140806
  2. VOTRIENT [Suspect]
     Active Substance: PAZOPANIB HYDROCHLORIDE
     Indication: RENAL CANCER
     Dosage: 800 MG, QD
     Dates: start: 20140807

REACTIONS (13)
  - Flatulence [Unknown]
  - Headache [Unknown]
  - Dysgeusia [Unknown]
  - Dry skin [Unknown]
  - Nausea [Unknown]
  - Weight decreased [Unknown]
  - Diarrhoea [Unknown]
  - Vision blurred [Unknown]
  - Thrombosis [Unknown]
  - Hair colour changes [Unknown]
  - Vomiting [Unknown]
  - Visual impairment [Unknown]
  - Fatigue [Unknown]
